FAERS Safety Report 21068488 (Version 1)
Quarter: 2022Q3

REPORT INFORMATION
  Report Type: Other
  Country: IR (occurrence: IR)
  Receive Date: 20220712
  Receipt Date: 20220712
  Transmission Date: 20221027
  Serious: Yes (Other)
  Sender: FDA-Public Use
  Company Number: IR-Prasco Laboratories-PRAS20220172

PATIENT
  Age: 29 Year
  Sex: Male

DRUGS (2)
  1. FLUPHENAZINE HYDROCHLORIDE [Suspect]
     Active Substance: FLUPHENAZINE HYDROCHLORIDE
     Indication: Delusion
     Dosage: 25 MG
     Route: 030
  2. FLUPHENAZINE HYDROCHLORIDE [Suspect]
     Active Substance: FLUPHENAZINE HYDROCHLORIDE
     Indication: Persecutory delusion

REACTIONS (3)
  - Bradycardia [Recovered/Resolved]
  - Dizziness [Recovered/Resolved]
  - Headache [Recovered/Resolved]

NARRATIVE: CASE EVENT DATE: 20180101
